FAERS Safety Report 4448211-3 (Version None)
Quarter: 2004Q3

REPORT INFORMATION
  Report Type: 
  Country: None (occurrence: None)
  Receive Date: 20040913
  Receipt Date: 20040903
  Transmission Date: 20050211
  Serious: Yes (Other)
  Sender: FDA-Public Use
  Company Number: BE-GLAXOSMITHKLINE-B0344969A

PATIENT
  Age: 12 Year
  Sex: Female

DRUGS (1)
  1. SERETIDE [Suspect]
     Route: 065

REACTIONS (1)
  - EPILEPSY [None]
